FAERS Safety Report 6367422-3 (Version None)
Quarter: 2009Q3

REPORT INFORMATION
  Report Type: 
  Country: None (occurrence: None)
  Receive Date: 20090921
  Receipt Date: 20090915
  Transmission Date: 20100115
  Serious: Yes (Other)
  Sender: FDA-Public Use
  Company Number: A0808095A

PATIENT
  Sex: Male
  Weight: 13 kg

DRUGS (1)
  1. FLIXOTIDE [Suspect]
     Dosage: 2PUFF PER DAY
     Route: 065
     Dates: start: 20090301

REACTIONS (1)
  - ASTHMATIC CRISIS [None]
